FAERS Safety Report 6983545-X (Version None)
Quarter: 2010Q3

REPORT INFORMATION
  Report Type: 
  Country: None (occurrence: None)
  Receive Date: 20100914
  Receipt Date: 20080730
  Transmission Date: 20110219
  Serious: No
  Sender: FDA-Public Use
  Company Number: US-WYE-H05338008

PATIENT
  Age: 2 Year
  Sex: Female
  Weight: 14.53 kg

DRUGS (1)
  1. ADVIL LIQUI-GELS [Suspect]
     Dosage: 1 LIQUI-GEL X 1
     Route: 048
     Dates: start: 20080726, end: 20080726

REACTIONS (3)
  - ACCIDENTAL DRUG INTAKE BY CHILD [None]
  - ACCIDENTAL OVERDOSE [None]
  - ORAL DISCOMFORT [None]
